FAERS Safety Report 4650260-7 (Version None)
Quarter: 2005Q2

REPORT INFORMATION
  Report Type: 
  Country: None (occurrence: None)
  Receive Date: 20050331
  Receipt Date: 20050201
  Transmission Date: 20051028
  Serious: No
  Sender: FDA-Public Use
  Company Number: 05P-163-0289017-00

PATIENT
  Age: 50 Year
  Sex: Female
  Weight: 53.978 kg

DRUGS (3)
  1. HUMIRA [Suspect]
     Indication: RHEUMATOID ARTHRITIS
     Dosage: 40 MG, 1 IN 2 WK, SUBCUTANEOUS
     Route: 058
     Dates: start: 20040101
  2. LOTREL [Concomitant]
  3. ESTRATEST H.S. [Concomitant]

REACTIONS (2)
  - NASOPHARYNGITIS [None]
  - THROAT IRRITATION [None]
